FAERS Safety Report 10246710 (Version 1)
Quarter: 2014Q2

REPORT INFORMATION
  Report Type: Spontaneous
  Country: US (occurrence: None)
  Receive Date: 20140617
  Receipt Date: 20140617
  Transmission Date: 20141212
  Serious: Yes (Disabling)
  Sender: FDA-Public Use
  Company Number: None

PATIENT
  Age: 39 Year
  Sex: Female
  Weight: 63.05 kg

DRUGS (1)
  1. LEVOCETIRIZINE 5 MG [Suspect]
     Indication: SEASONAL ALLERGY
     Dosage: 1 TABLET ONCE DAILY TAKEN BY MOUTH
     Route: 048
     Dates: start: 20140412, end: 20140611

REACTIONS (13)
  - Somnolence [None]
  - Anxiety [None]
  - Hypoaesthesia [None]
  - Paraesthesia [None]
  - Restless legs syndrome [None]
  - Muscle twitching [None]
  - Tremor [None]
  - Nightmare [None]
  - Insomnia [None]
  - Fluid retention [None]
  - Weight increased [None]
  - Hypoaesthesia [None]
  - Hypoaesthesia [None]
